FAERS Safety Report 13945220 (Version 2)
Quarter: 2017Q3

REPORT INFORMATION
  Report Type: Spontaneous
  Country: IN (occurrence: IN)
  Receive Date: 20170907
  Receipt Date: 20170911
  Transmission Date: 20171128
  Serious: Yes (Life-Threatening, Other)
  Sender: FDA-Public Use
  Company Number: IN-ALLERGAN-1749833US

PATIENT
  Age: 57 Year
  Sex: Male

DRUGS (3)
  1. ESCITALOPRAM OXALATE - BP [Suspect]
     Active Substance: ESCITALOPRAM OXALATE
     Indication: DEPRESSION
     Dosage: 10 MG, QD, 3 MONTHS
     Route: 065
  2. QUETIAPINE. [Suspect]
     Active Substance: QUETIAPINE
     Indication: HALLUCINATION
     Dosage: 50 MG, QD UNSPECIFIED INTERVAL
     Route: 065
  3. AMLODIPINE [Concomitant]
     Active Substance: AMLODIPINE BESYLATE
     Indication: PRODUCT USED FOR UNKNOWN INDICATION
     Dosage: 10 MG DAILY, 3 MONTHS
     Route: 065

REACTIONS (4)
  - Condition aggravated [Recovering/Resolving]
  - Myxoedema coma [Recovering/Resolving]
  - Drug ineffective [Unknown]
  - Hypothyroidism [Recovering/Resolving]
